FAERS Safety Report 9380429 (Version 1)
Quarter: 2013Q3

REPORT INFORMATION
  Report Type: Spontaneous
  Country: CA (occurrence: CA)
  Receive Date: 20130702
  Receipt Date: 20130702
  Transmission Date: 20140515
  Serious: Yes (Hospitalization)
  Sender: FDA-Public Use
  Company Number: CA-B.I. PHARMACEUTICALS,INC./RIDGEFIELD-2013-CN-01161CN

PATIENT
  Age: 80 Year
  Sex: Female
  Weight: 78 kg

DRUGS (11)
  1. PRADAX [Suspect]
     Dosage: 220 MG
     Route: 048
  2. ASPIRIN - CHILDREN^S SIZE [Suspect]
     Dosage: 80 MG
     Route: 048
  3. ATENOLOL [Concomitant]
  4. CALCIUM [Concomitant]
  5. D-TABS [Concomitant]
  6. DILAUDID [Concomitant]
  7. FERROUS SULPHATE [Concomitant]
  8. NITROGLYCERIN [Concomitant]
  9. PANTOPRAZOLE [Concomitant]
  10. PRAVASTATIN SODIUM [Concomitant]
  11. TYLENOL [Concomitant]

REACTIONS (7)
  - Anaemia [Unknown]
  - Creatinine renal clearance decreased [Unknown]
  - Impaired healing [Unknown]
  - Wound complication [Unknown]
  - Wound haematoma [Unknown]
  - Wound infection [Unknown]
  - Wound secretion [Unknown]
